FAERS Safety Report 15516078 (Version 15)
Quarter: 2022Q1

REPORT INFORMATION
  Report Type: Spontaneous
  Country: US (occurrence: US)
  Receive Date: 20181017
  Receipt Date: 20220222
  Transmission Date: 20220423
  Serious: Yes (Other)
  Sender: FDA-Public Use
  Company Number: US-PFIZER INC-2018419211

PATIENT
  Age: 68 Year
  Sex: Female
  Weight: 59 kg

DRUGS (10)
  1. LYRICA [Suspect]
     Active Substance: PREGABALIN
     Indication: Fibromyalgia
     Dosage: 200 MG, 3X/DAY
     Route: 048
  2. LYRICA [Suspect]
     Active Substance: PREGABALIN
     Indication: Pain
     Dosage: 200 MG, UNK (TWO OR 3 TIMES A DAY)
     Route: 048
  3. LYRICA [Suspect]
     Active Substance: PREGABALIN
     Indication: Neuropathy peripheral
     Dosage: 200 MG, 3X/DAY
     Route: 048
  4. PREMARIN [Concomitant]
     Active Substance: ESTROGENS, CONJUGATED
     Indication: Hormone level abnormal
     Dosage: 0.625 MG, 1X/DAY
     Route: 048
     Dates: start: 1977
  5. PREMARIN [Concomitant]
     Active Substance: ESTROGENS, CONJUGATED
     Indication: Affective disorder
     Dosage: UNK, DAILY
     Dates: start: 2001
  6. FUROSEMIDE [Concomitant]
     Active Substance: FUROSEMIDE
     Dosage: 20 MG, DAILY
  7. LEVOTHYROXINE [Concomitant]
     Active Substance: LEVOTHYROXINE
     Dosage: 100 UG, DAILY (100MCG TAB SAN DAILY)
  8. METOPROLOL [Concomitant]
     Active Substance: METOPROLOL
     Dosage: 25 MG, UNK (CUT IN HALF TAKEN HALF AM AND PM)
  9. CLOPIDOGREL [Concomitant]
     Active Substance: CLOPIDOGREL BISULFATE
     Dosage: 75 MG, DAILY
  10. CARTIA XT [Concomitant]
     Active Substance: DILTIAZEM HYDROCHLORIDE
     Dosage: UNK (120/24 HR CAP WAT)

REACTIONS (13)
  - Cerebrovascular accident [Unknown]
  - Carotid artery occlusion [Unknown]
  - Neoplasm malignant [Unknown]
  - Expired product administered [Unknown]
  - Hot flush [Not Recovered/Not Resolved]
  - Dyspnoea [Recovered/Resolved]
  - Gait disturbance [Unknown]
  - Speech disorder [Unknown]
  - Amnesia [Unknown]
  - Fatigue [Unknown]
  - Anxiety [Unknown]
  - Headache [Unknown]
  - Urinary tract infection [Unknown]

NARRATIVE: CASE EVENT DATE: 20180101
